FAERS Safety Report 9506233 (Version 1)
Quarter: 2013Q1

REPORT INFORMATION
  Report Type: Spontaneous
  Country: US (occurrence: None)
  Receive Date: 20130305
  Receipt Date: 20130305
  Transmission Date: 20140127
  Serious: Yes (Disabling)
  Sender: FDA-Public Use
  Company Number: 163-21880-11030691

PATIENT
  Age: 66 Year
  Sex: Male
  Weight: 73 kg

DRUGS (1)
  1. REVLIMID [Suspect]
     Indication: NON-HODGKIN^S LYMPHOMA
     Dosage: 25 MG, DAILY X 21 DAYS, PO
     Dates: start: 201011

REACTIONS (4)
  - Drug ineffective [None]
  - Pyrexia [None]
  - Nausea [None]
  - Non-Hodgkin^s lymphoma [None]
